FAERS Safety Report 7264597-9 (Version None)
Quarter: 2011Q1

REPORT INFORMATION
  Report Type: 
  Country: None (occurrence: None)
  Receive Date: 20110131
  Receipt Date: 20110124
  Transmission Date: 20110831
  Serious: No
  Sender: FDA-Public Use
  Company Number: US-PFIZER INC-2011016953

PATIENT
  Sex: Male
  Weight: 89.342 kg

DRUGS (2)
  1. PRAVASTATIN [Concomitant]
     Indication: BLOOD CHOLESTEROL ABNORMAL
     Dosage: UNK
     Dates: start: 20080101
  2. VIAGRA [Suspect]
     Indication: ERECTILE DYSFUNCTION
     Dosage: 50 MG, AS NEEDED
     Route: 048
     Dates: start: 20070101

REACTIONS (4)
  - EYE DISORDER [None]
  - EYE IRRITATION [None]
  - PHOTOPHOBIA [None]
  - DRUG INEFFECTIVE [None]
